FAERS Safety Report 13339154 (Version 1)
Quarter: 2017Q1

REPORT INFORMATION
  Report Type: Spontaneous
  Country: US (occurrence: US)
  Receive Date: 20170315
  Receipt Date: 20170315
  Transmission Date: 20170428
  Serious: No
  Sender: FDA-Public Use
  Company Number: US-PFIZER INC-2017104841

PATIENT
  Age: 68 Year
  Sex: Male
  Weight: 83.9 kg

DRUGS (5)
  1. FLONASE [Concomitant]
     Active Substance: FLUTICASONE PROPIONATE
     Indication: SINUS DISORDER
     Dosage: 50 UG, 1X/DAY (ONCE IN THE MORNING)
     Route: 045
  2. FLOMAX [Concomitant]
     Active Substance: TAMSULOSIN HYDROCHLORIDE
     Indication: PROSTATOMEGALY
     Dosage: 0.4 MG, UNK
  3. VIAGRA [Suspect]
     Active Substance: SILDENAFIL CITRATE
     Dosage: UNK
  4. VIAGRA [Suspect]
     Active Substance: SILDENAFIL CITRATE
     Dosage: 25 MG, UNK [STARTED SPLITTING THEM ON HALF]
  5. VIAGRA [Suspect]
     Active Substance: SILDENAFIL CITRATE
     Indication: ERECTILE DYSFUNCTION
     Dosage: 12.5 MG, UNK [SPLIT FIRST TABLET IN QUARTERS]
     Dates: start: 20170217

REACTIONS (10)
  - Abdominal pain lower [Recovering/Resolving]
  - Abdominal pain upper [Recovering/Resolving]
  - Flushing [Recovering/Resolving]
  - Heart rate increased [Recovering/Resolving]
  - Heart rate irregular [Recovering/Resolving]
  - Blood pressure decreased [Unknown]
  - Muscle spasms [Not Recovered/Not Resolved]
  - Blood pressure increased [Unknown]
  - Constipation [Recovering/Resolving]
  - Gastrointestinal pain [Recovering/Resolving]

NARRATIVE: CASE EVENT DATE: 20170308
